FAERS Safety Report 25994336 (Version 1)
Quarter: 2025Q4

REPORT INFORMATION
  Report Type: Spontaneous
  Country: UA (occurrence: UA)
  Receive Date: 20251104
  Receipt Date: 20251104
  Transmission Date: 20260117
  Serious: Yes (Life-Threatening, Hospitalization, Other)
  Sender: RANBAXY
  Company Number: UA-SUN PHARMACEUTICAL INDUSTRIES INC-2025R1-534219

PATIENT
  Age: 13 Year
  Sex: Male

DRUGS (1)
  1. IBUPROFEN [Suspect]
     Active Substance: IBUPROFEN
     Indication: Febrile neutropenia
     Dosage: UNK
     Route: 065

REACTIONS (3)
  - Epistaxis [Recovering/Resolving]
  - Chest pain [Recovering/Resolving]
  - Condition aggravated [Unknown]
